FAERS Safety Report 7645720-0 (Version None)
Quarter: 2011Q3

REPORT INFORMATION
  Report Type: 
  Country: None (occurrence: None)
  Receive Date: 20110729
  Receipt Date: 20110725
  Transmission Date: 20111222
  Serious: Yes (Hospitalization)
  Sender: FDA-Public Use
  Company Number: US-ABBOTT-11P-163-0841841-00

PATIENT
  Sex: Male
  Weight: 95.34 kg

DRUGS (8)
  1. ROPINIROLE [Concomitant]
     Indication: MUSCLE DISORDER
  2. CITRACAL WITH VIT D [Concomitant]
     Indication: SUPPLEMENTATION THERAPY
  3. MULTIPLE VITAMINS [Concomitant]
     Indication: VITAMIN SUPPLEMENTATION
  4. ZYRTEC [Concomitant]
     Indication: HYPERSENSITIVITY
  5. HUMIRA [Suspect]
     Indication: PSORIATIC ARTHROPATHY
     Dates: start: 20070101, end: 20110101
  6. SLOW NIACIN [Concomitant]
     Indication: SUPPLEMENTATION THERAPY
  7. FENOFIBRATE [Concomitant]
     Indication: HYPERLIPIDAEMIA
  8. SERTRALINE HYDROCHLORIDE [Concomitant]
     Indication: STRESS

REACTIONS (5)
  - INTRACRANIAL HYPOTENSION [None]
  - TUMOUR INVASION [None]
  - SINUS DISORDER [None]
  - PITUITARY TUMOUR [None]
  - NASOPHARYNGITIS [None]
